FAERS Safety Report 10506040 (Version 1)
Quarter: 2014Q4

REPORT INFORMATION
  Report Type: Spontaneous
  Country: US (occurrence: US)
  Receive Date: 20141008
  Receipt Date: 20141008
  Transmission Date: 20150528
  Serious: No
  Sender: FDA-Public Use
  Company Number: US-009507513-1409USA012104

PATIENT
  Sex: Female

DRUGS (4)
  1. VYTORIN [Suspect]
     Active Substance: EZETIMIBE\SIMVASTATIN
     Route: 048
  2. HYDROCHLOROTHIAZIDE. [Suspect]
     Active Substance: HYDROCHLOROTHIAZIDE
     Route: 048
  3. VALSARTAN. [Suspect]
     Active Substance: VALSARTAN
  4. SIMVASTATIN TABLETS, USP [Suspect]
     Active Substance: SIMVASTATIN
     Route: 048

REACTIONS (4)
  - Cough [Unknown]
  - Micturition disorder [Unknown]
  - Poor quality sleep [Unknown]
  - Influenza like illness [Unknown]
